FAERS Safety Report 5677686-7 (Version None)
Quarter: 2008Q1

REPORT INFORMATION
  Report Type: 
  Country: None (occurrence: None)
  Receive Date: 20080324
  Receipt Date: 20080314
  Transmission Date: 20080703
  Serious: Yes (Hospitalization)
  Sender: FDA-Public Use
  Company Number: US-ABBOTT-08P-163-0442414-00

PATIENT
  Sex: Female
  Weight: 63.106 kg

DRUGS (7)
  1. HUMIRA [Suspect]
     Indication: PSORIATIC ARTHROPATHY
     Route: 058
     Dates: start: 20070101, end: 20080129
  2. HUMIRA [Suspect]
     Dates: start: 20080129
  3. METHOTREXATE [Concomitant]
     Indication: PSORIATIC ARTHROPATHY
     Route: 048
     Dates: start: 20040101
  4. FOLIC ACID [Concomitant]
     Indication: VITAMIN SUPPLEMENTATION
     Route: 048
     Dates: start: 20040101
  5. ALPRAZOLAM [Concomitant]
     Indication: ANXIETY DISORDER
     Route: 048
  6. TRAMADOL HCL [Concomitant]
     Indication: PAIN
     Route: 048
  7. METOCLOPRAMIDE [Concomitant]
     Indication: DYSPEPSIA
     Route: 048

REACTIONS (3)
  - CHOLECYSTITIS [None]
  - JOINT SWELLING [None]
  - PSORIASIS [None]
